FAERS Safety Report 9918989 (Version 2)
Quarter: 2014Q4

REPORT INFORMATION
  Report Type: Spontaneous
  Country: US (occurrence: US)
  Receive Date: 20140224
  Receipt Date: 20141205
  Transmission Date: 20150529
  Serious: No
  Sender: FDA-Public Use
  Company Number: US-BRISTOL-MYERS SQUIBB COMPANY-17387804

PATIENT
  Age: 62 Year
  Sex: Female
  Weight: 111.11 kg

DRUGS (8)
  1. TENORMIN [Concomitant]
     Active Substance: ATENOLOL
     Dosage: 1DF:50MG TAB?START DATE 18-APR-2013
     Route: 048
     Dates: start: 20130103
  2. ALDACTONE [Concomitant]
     Active Substance: SPIRONOLACTONE
     Route: 048
     Dates: start: 20140204
  3. GLUCOPHAGE [Suspect]
     Active Substance: METFORMIN HYDROCHLORIDE
     Dates: start: 20111208
  4. XANAX [Concomitant]
     Active Substance: ALPRAZOLAM
     Route: 048
     Dates: start: 20140129
  5. DIOVAN [Concomitant]
     Active Substance: VALSARTAN
     Route: 048
     Dates: start: 20130109
  6. NORVASC [Concomitant]
     Active Substance: AMLODIPINE BESYLATE
     Route: 048
     Dates: start: 20131202
  7. XALATAN [Concomitant]
     Active Substance: LATANOPROST
     Dosage: FORMULATION:OPTHALMIC SOLUTION
     Route: 047
     Dates: start: 20120709
  8. LEVOTHYROXINE [Concomitant]
     Active Substance: LEVOTHYROXINE
     Route: 048
     Dates: start: 20140331

REACTIONS (1)
  - Hypersensitivity [Not Recovered/Not Resolved]

NARRATIVE: CASE EVENT DATE: 20111208
